FAERS Safety Report 8924638 (Version 1)
Quarter: 2012Q4

REPORT INFORMATION
  Report Type: 
  Country: US (occurrence: US)
  Receive Date: 20121126
  Receipt Date: 20121126
  Transmission Date: 20130627
  Serious: No
  Sender: FDA-Public Use
  Company Number: US-PFIZER INC-2012293015

PATIENT
  Sex: Male
  Weight: 74.83 kg

DRUGS (6)
  1. LYRICA [Suspect]
     Indication: NEUROPATHY PERIPHERAL
     Dosage: 150 mg, 2x/day
  2. LYRICA [Suspect]
     Dosage: 150 mg, 3x/day
     Dates: start: 2012
  3. HYDROCODONE [Suspect]
     Indication: NEUROPATHY PERIPHERAL
     Dosage: 40 mg, daily
  4. HYDROCODONE [Suspect]
     Indication: POLYCYTHEMIA VERA
  5. CYMBALTA [Concomitant]
     Indication: NEUROPATHY PERIPHERAL
     Dosage: 60 mg, daily
  6. CYMBALTA [Concomitant]
     Indication: POLYCYTHEMIA VERA

REACTIONS (6)
  - Drug ineffective [Unknown]
  - Hypersensitivity [Not Recovered/Not Resolved]
  - Night sweats [Not Recovered/Not Resolved]
  - Feeling of body temperature change [Not Recovered/Not Resolved]
  - Chills [Not Recovered/Not Resolved]
  - Pyrexia [Not Recovered/Not Resolved]
